FAERS Safety Report 4927184-0 (Version None)
Quarter: 2006Q1

REPORT INFORMATION
  Report Type: 
  Country: None (occurrence: None)
  Receive Date: 20060228
  Receipt Date: 20000928
  Transmission Date: 20060701
  Serious: Yes (Hospitalization)
  Sender: FDA-Public Use
  Company Number: US-GLAXOSMITHKLINE-A0128863A

PATIENT
  Age: 60 Year
  Sex: Female

DRUGS (10)
  1. IMITREX [Suspect]
     Indication: MIGRAINE
     Route: 058
  2. IMITREX [Suspect]
     Route: 048
     Dates: start: 19990101
  3. IMITREX [Suspect]
     Route: 045
     Dates: start: 20000101
  4. IMITREX [Suspect]
     Route: 058
  5. MIGRAINE MEDICATION (UNSPECIFIED) [Suspect]
     Indication: MIGRAINE
     Route: 042
  6. HORMONES [Concomitant]
     Indication: DRUG USE FOR UNKNOWN INDICATION
  7. ATIVAN [Concomitant]
     Indication: DRUG USE FOR UNKNOWN INDICATION
  8. OSTEOPOROSIS MEDICATION [Concomitant]
     Indication: OSTEOPOROSIS
  9. VITAMINS [Concomitant]
     Indication: DRUG USE FOR UNKNOWN INDICATION
  10. CALCIUM GLUCONATE [Concomitant]
     Indication: DRUG USE FOR UNKNOWN INDICATION

REACTIONS (7)
  - CHEST DISCOMFORT [None]
  - DRUG INEFFECTIVE [None]
  - DYSPNOEA [None]
  - MIGRAINE [None]
  - NERVOUSNESS [None]
  - OVERDOSE [None]
  - PHARMACEUTICAL PRODUCT COMPLAINT [None]
